FAERS Safety Report 6231794-0 (Version None)
Quarter: 2009Q2

REPORT INFORMATION
  Report Type: 
  Country: None (occurrence: None)
  Receive Date: 20090616
  Receipt Date: 20090612
  Transmission Date: 20091009
  Serious: Yes (Life-Threatening, Hospitalization, Other)
  Sender: FDA-Public Use
  Company Number: PHHY2009GB15371

PATIENT
  Sex: Female

DRUGS (2)
  1. CLOZARIL [Suspect]
     Indication: SCHIZOPHRENIA
     Dosage: 150 MG, UNK
     Route: 048
     Dates: start: 20080914, end: 20090420
  2. ARIPIPRAZOLE [Concomitant]

REACTIONS (12)
  - ABDOMINAL PAIN [None]
  - AGRANULOCYTOSIS [None]
  - DISORIENTATION [None]
  - ENCEPHALOPATHY [None]
  - INFECTION [None]
  - MALAISE [None]
  - NEUTROPHIL COUNT DECREASED [None]
  - NEUTROPHIL COUNT INCREASED [None]
  - PYREXIA [None]
  - URINARY INCONTINENCE [None]
  - WHITE BLOOD CELL COUNT DECREASED [None]
  - WHITE BLOOD CELL COUNT INCREASED [None]
